FAERS Safety Report 9472481 (Version 1)
Quarter: 2013Q3

REPORT INFORMATION
  Report Type: Spontaneous
  Country: US (occurrence: None)
  Receive Date: 20130821
  Receipt Date: 20130821
  Transmission Date: 20140515
  Serious: No
  Sender: FDA-Public Use
  Company Number: None

PATIENT
  Age: 37 Year
  Sex: Female
  Weight: 72.1 kg

DRUGS (2)
  1. RISPERDAL [Suspect]
     Dosage: 1 TAB (0.5 MG) QD ORAL
     Route: 048
     Dates: start: 20130811, end: 20130819
  2. RISPERDAL [Suspect]
     Dosage: 1 TAB (1 MG) QHS/BEDTIME ORAL
     Route: 048
     Dates: start: 20130811, end: 20130819

REACTIONS (1)
  - Trismus [None]
